FAERS Safety Report 8841910 (Version 1)
Quarter: 2012Q4

REPORT INFORMATION
  Report Type: Spontaneous
  Country: US (occurrence: None)
  Receive Date: 20121015
  Receipt Date: 20121015
  Transmission Date: 20130627
  Serious: Yes (Other)
  Sender: FDA-Public Use
  Company Number: None

PATIENT
  Sex: Female

DRUGS (1)
  1. REMBRANDT 2 HOUR WHITENING KIT [Suspect]
     Indication: TOOTH DISCOLORATION
     Dosage: , , dental
     Route: 004

REACTIONS (3)
  - Gingival pain [None]
  - Aphagia [None]
  - Chemical injury [None]
